FAERS Safety Report 24423004 (Version 1)
Quarter: 2024Q4

REPORT INFORMATION
  Report Type: Spontaneous
  Country: US (occurrence: US)
  Receive Date: 20241010
  Receipt Date: 20241010
  Transmission Date: 20250115
  Serious: Yes (Other)
  Sender: RANBAXY
  Company Number: US-SUN PHARMACEUTICAL INDUSTRIES LTD-2024R1-472510

PATIENT
  Age: 86 Year
  Sex: Male

DRUGS (4)
  1. NOREPINEPHRINE [Suspect]
     Active Substance: NOREPINEPHRINE\NOREPINEPHRINE BITARTRATE
     Indication: Electrocardiogram ST segment depression
     Dosage: UNK
     Route: 065
  2. ASPIRIN [Suspect]
     Active Substance: ASPIRIN
     Indication: Electrocardiogram ST segment depression
     Dosage: UNK
     Route: 065
  3. DOBUTAMINE [Suspect]
     Active Substance: DOBUTAMINE HYDROCHLORIDE
     Indication: Electrocardiogram ST segment depression
     Dosage: UNK
     Route: 065
  4. HEPARIN [Suspect]
     Active Substance: HEPARIN SODIUM
     Indication: Electrocardiogram ST segment depression
     Dosage: UNK
     Route: 065

REACTIONS (1)
  - Condition aggravated [Unknown]
